FAERS Safety Report 18002068 (Version 4)
Quarter: 2020Q4

REPORT INFORMATION
  Report Type: Other
  Country: ES (occurrence: ES)
  Receive Date: 20200709
  Receipt Date: 20201007
  Transmission Date: 20210113
  Serious: Yes (Hospitalization)
  Sender: FDA-Public Use
  Company Number: ES-ROCHE-2636156

PATIENT
  Age: 66 Year
  Sex: Male

DRUGS (1)
  1. OCRELIZUMAB. [Suspect]
     Active Substance: OCRELIZUMAB
     Indication: RELAPSING-REMITTING MULTIPLE SCLEROSIS
     Dosage: 600MG/6MONTHS
     Route: 065

REACTIONS (1)
  - COVID-19 [Not Recovered/Not Resolved]
